FAERS Safety Report 16609459 (Version 1)
Quarter: 2019Q3

REPORT INFORMATION
  Report Type: Spontaneous
  Country: NL (occurrence: DE)
  Receive Date: 20190722
  Receipt Date: 20190722
  Transmission Date: 20191004
  Serious: Yes (Hospitalization)
  Sender: FDA-Public Use
  Company Number: DE-FRESENIUS KABI-FK201907843

PATIENT
  Age: 61 Year
  Sex: Female
  Weight: 52 kg

DRUGS (13)
  1. MESNA. [Concomitant]
     Active Substance: MESNA
     Indication: PRODUCT USED FOR UNKNOWN INDICATION
     Dosage: 1000 MG/M2, 05.08.2017, SOLUTION FOR INJECTION / INFUSION
     Route: 042
  2. IFOSFAMIDE. [Suspect]
     Active Substance: IFOSFAMIDE
     Indication: PRODUCT USED FOR UNKNOWN INDICATION
     Dosage: 5000 MG/M2, 05.08.2017, SOLUTION FOR INJECTION / INFUSION
     Route: 042
  3. SULFAMETHOXAZOLE/TRIMETHOPRIM [Concomitant]
     Indication: PRODUCT USED FOR UNKNOWN INDICATION
     Dosage: 800|160 MG, 1-0-1; MO; MI; FR, TABLET
     Route: 048
  4. DEXAMETHASONE. [Concomitant]
     Active Substance: DEXAMETHASONE
     Indication: PRODUCT USED FOR UNKNOWN INDICATION
     Dosage: 8 MG, 04.08.2017-06.08.2017, TABLET
     Route: 048
  5. PANTOPRAZOLE [Concomitant]
     Active Substance: PANTOPRAZOLE
     Indication: PRODUCT USED FOR UNKNOWN INDICATION
     Dosage: 20 MG, 1-0-0, TABLET
     Route: 048
  6. MAGNESIUM [Concomitant]
     Active Substance: MAGNESIUM
     Indication: PRODUCT USED FOR UNKNOWN INDICATION
     Dosage: 1-1-0, CHEWING TABLETS
     Route: 048
  7. CARBOPLATIN (MANUFACTURER UNKNOWN) [Suspect]
     Active Substance: CARBOPLATIN
     Indication: PRODUCT USED FOR UNKNOWN INDICATION
     Dosage: 5 AUC, 05.08.2017, SOLUTION FOR INJECTION / INFUSION
     Route: 042
  8. ETOPOSIDE. [Suspect]
     Active Substance: ETOPOSIDE
     Indication: PRODUCT USED FOR UNKNOWN INDICATION
     Dosage: 100 MG/M2, 04.08.2017-06.08.2017, SOLUTION FOR INJECTION / INFUSION
     Route: 042
  9. LEVOTHYROXINE SODIUM. [Concomitant]
     Active Substance: LEVOTHYROXINE SODIUM
     Indication: PRODUCT USED FOR UNKNOWN INDICATION
     Dosage: 75 ?G, 1-0-0, TABLET
     Route: 048
  10. ONDANSETRON [Concomitant]
     Active Substance: ONDANSETRON
     Indication: PRODUCT USED FOR UNKNOWN INDICATION
     Dosage: 8 MG, 1-0-1; 05.08.2017-08.08.2017, TABLET
     Route: 048
  11. DEXAMETHASONE. [Concomitant]
     Active Substance: DEXAMETHASONE
     Dosage: 12 MG, 1-0-1, AM 03.08.2017, TABLETTEN
     Route: 048
  12. FILGRASTIM [Concomitant]
     Active Substance: FILGRASTIM
     Indication: PRODUCT USED FOR UNKNOWN INDICATION
     Dosage: 08.08.2017, SOLUTION FOR INJECTION / INFUSION
     Route: 058
  13. MESNA. [Concomitant]
     Active Substance: MESNA
     Dosage: 5000 MG/M? ?BER 24H, 05.08.2017-06.08.2017, INJEKTIONS-/INFUSIONSL?SUNG
     Route: 042

REACTIONS (4)
  - Mucosal inflammation [Unknown]
  - Pyrexia [Unknown]
  - Nausea [Unknown]
  - Headache [Unknown]
